FAERS Safety Report 6242856-6 (Version None)
Quarter: 2009Q2

REPORT INFORMATION
  Report Type: 
  Country: None (occurrence: None)
  Receive Date: 20090624
  Receipt Date: 20090616
  Transmission Date: 20091009
  Serious: Yes (Hospitalization)
  Sender: FDA-Public Use
  Company Number: B0574673A

PATIENT
  Sex: Female

DRUGS (2)
  1. ZEFIX [Suspect]
     Indication: HEPATITIS B
     Route: 048
     Dates: start: 20070701
  2. HEPSERA [Suspect]
     Indication: HEPATITIS B
     Route: 048

REACTIONS (2)
  - ALTERED STATE OF CONSCIOUSNESS [None]
  - CONFUSIONAL STATE [None]
